FAERS Safety Report 6663692-2 (Version None)
Quarter: 2010Q1

REPORT INFORMATION
  Report Type: 
  Country: None (occurrence: None)
  Receive Date: 20100331
  Receipt Date: 20100331
  Transmission Date: 20100710
  Serious: Yes (Hospitalization)
  Sender: FDA-Public Use
  Company Number: None

PATIENT
  Age: 22 Year
  Sex: Female
  Weight: 56.2 kg

DRUGS (17)
  1. LEVETIRACETAM [Suspect]
     Indication: CONVULSION
     Dosage: 500MG TWICE DAILY PO
     Route: 048
  2. ACETAMINOPHEN AND HYDROCODONE BITARTRATE [Concomitant]
  3. CAPTOPRIL [Concomitant]
  4. PROMETHAZINE [Concomitant]
  5. PREDNISONE TAB [Concomitant]
  6. SUCRALAFATE [Concomitant]
  7. PANTOPRAZOLE [Concomitant]
  8. WARFARIN SODIUM [Concomitant]
  9. FUROSEMIDE [Concomitant]
  10. ALPRAZOLAM [Concomitant]
  11. ZOLPIDEM [Concomitant]
  12. MYCOPHENOLATE MOEFETIL [Concomitant]
  13. METOPROLOL TARTRATE [Concomitant]
  14. HYDROXYCHLOROQUINE SULFATE [Concomitant]
  15. CLONIDINE [Concomitant]
  16. METOCLOPRAMIDE [Concomitant]
  17. DOXAZOSIN [Concomitant]

REACTIONS (3)
  - ACTIVATED PARTIAL THROMBOPLASTIN TIME PROLONGED [None]
  - ANTIPHOSPHOLIPID ANTIBODIES POSITIVE [None]
  - PANCREATITIS RELAPSING [None]
